FAERS Safety Report 25332614 (Version 1)
Quarter: 2025Q2

REPORT INFORMATION
  Report Type: Spontaneous
  Country: US (occurrence: US)
  Receive Date: 20250519
  Receipt Date: 20250519
  Transmission Date: 20250717
  Serious: No
  Sender: NOVO NORDISK
  Company Number: US-NOVOPROD-1293760

PATIENT
  Sex: Male
  Weight: 34.8 kg

DRUGS (2)
  1. NORDITROPIN [Suspect]
     Active Substance: SOMATROPIN
     Indication: Growth hormone deficiency
     Dosage: 1.4 MG, QD
     Route: 058
  2. GENOTROPIN [Concomitant]
     Active Substance: SOMATROPIN
     Indication: Growth hormone deficiency
     Dosage: 1.8 MG, QW

REACTIONS (1)
  - Skin odour abnormal [Unknown]
